FAERS Safety Report 22262982 (Version 1)
Quarter: 2023Q2

REPORT INFORMATION
  Report Type: Spontaneous
  Country: US (occurrence: US)
  Receive Date: 20230428
  Receipt Date: 20230428
  Transmission Date: 20230722
  Serious: No
  Sender: FDA-Public Use
  Company Number: US-BRISTOL-MYERS SQUIBB COMPANY-2023-058432

PATIENT
  Age: 40 Year
  Sex: Female

DRUGS (1)
  1. SOTYKTU [Suspect]
     Active Substance: DEUCRAVACITINIB
     Indication: Guttate psoriasis
     Route: 048
     Dates: start: 202303

REACTIONS (2)
  - Rash [Unknown]
  - Treatment noncompliance [Unknown]
